FAERS Safety Report 10535103 (Version 2)
Quarter: 2018Q1

REPORT INFORMATION
  Report Type: Spontaneous
  Country: US (occurrence: US)
  Receive Date: 20141022
  Receipt Date: 20180214
  Transmission Date: 20180508
  Serious: No
  Sender: FDA-Public Use
  Company Number: US-ASTRAZENECA-2014SE27757

PATIENT
  Age: 852 Month
  Sex: Female
  Weight: 62.1 kg

DRUGS (9)
  1. CRESTOR [Suspect]
     Active Substance: ROSUVASTATIN CALCIUM
     Indication: BLOOD CHOLESTEROL ABNORMAL
     Route: 048
     Dates: start: 2006
  2. SYNTHROID [Concomitant]
     Active Substance: LEVOTHYROXINE SODIUM
     Indication: BLOOD PARATHYROID HORMONE DECREASED
     Route: 048
  3. MONTELUKAST [Concomitant]
     Active Substance: MONTELUKAST SODIUM
     Indication: NASAL DISCOMFORT
     Route: 048
     Dates: start: 201401
  4. CRESTOR [Suspect]
     Active Substance: ROSUVASTATIN CALCIUM
     Indication: PROPHYLAXIS
     Route: 048
     Dates: start: 2006
  5. NASONEX [Concomitant]
     Active Substance: MOMETASONE FUROATE
     Indication: NASAL DISCOMFORT
     Dosage: 50MCG DAILY
     Route: 045
     Dates: start: 201401
  6. CRESTOR [Suspect]
     Active Substance: ROSUVASTATIN CALCIUM
     Indication: BLOOD CHOLESTEROL ABNORMAL
     Dosage: GENERIC CRESTOR
     Route: 048
  7. BABY ASPIRIN [Concomitant]
     Active Substance: ASPIRIN
     Indication: ANTICOAGULANT THERAPY
     Route: 048
     Dates: start: 1992
  8. VITAMIN D [Concomitant]
     Active Substance: CHOLECALCIFEROL
     Indication: VITAMIN D DEFICIENCY
     Route: 048
  9. CRESTOR [Suspect]
     Active Substance: ROSUVASTATIN CALCIUM
     Indication: PROPHYLAXIS
     Dosage: GENERIC CRESTOR
     Route: 048

REACTIONS (12)
  - Rhinorrhoea [Unknown]
  - Laryngitis [Unknown]
  - Malaise [Unknown]
  - Muscle spasms [Unknown]
  - Drug ineffective [Unknown]
  - Multiple allergies [Unknown]
  - Hypertension [Unknown]
  - Drug dose omission [Unknown]
  - Nasopharyngitis [Unknown]
  - Thyroid disorder [Unknown]
  - Blood cholesterol abnormal [Unknown]
  - Muscle tightness [Unknown]

NARRATIVE: CASE EVENT DATE: 201301
